FAERS Safety Report 4964494-5 (Version None)
Quarter: 2006Q1

REPORT INFORMATION
  Report Type: 
  Country: None (occurrence: None)
  Receive Date: 20060331
  Receipt Date: 20060320
  Transmission Date: 20060701
  Serious: Yes (Life-Threatening, Hospitalization)
  Sender: FDA-Public Use
  Company Number: 223076

PATIENT
  Age: 54 Year
  Sex: Male
  Weight: 95.1 kg

DRUGS (9)
  1. MABTHERA [Suspect]
     Indication: DIFFUSE LARGE B-CELL LYMPHOMA
     Dosage: 776.25 MG, DAY 2/7, INTRAVENOUS; 783.75 MG
     Route: 042
     Dates: start: 20060227, end: 20060302
  2. ETOPOSIDE [Suspect]
     Indication: DIFFUSE LARGE B-CELL LYMPHOMA
     Dosage: 209 MG, DAY 2/4, INTRAVENOUS
     Route: 042
     Dates: start: 20060302, end: 20060304
  3. CARBOPLATIN [Suspect]
     Indication: DIFFUSE LARGE B-CELL LYMPHOMA
     Dosage: 737 MG, DAY 2, INTRAVENOUS
     Route: 042
     Dates: start: 20060303, end: 20060303
  4. IFOSFAMIDE [Suspect]
     Indication: DIFFUSE LARGE B-CELL LYMPHOMA
     Dosage: DAY 2
     Dates: start: 20060302
  5. BELOC-ZOK MITE (METOPROLOL SUCCINATE) [Concomitant]
  6. AMPHO NORMAL (AMPHOTERICIN B) [Concomitant]
  7. COTRIM FORTE (SULFAMETHOXAZOLE, TRIMETHOPRIM) [Concomitant]
  8. FOLIC ACID [Concomitant]
  9. PAVASIN               (PRAVASTATIN SODIUM) [Concomitant]

REACTIONS (2)
  - ACUTE MYOCARDIAL INFARCTION [None]
  - CORONARY ARTERY DISEASE [None]
